FAERS Safety Report 14155515 (Version 3)
Quarter: 2018Q2

REPORT INFORMATION
  Report Type: Spontaneous
  Country: FR (occurrence: FR)
  Receive Date: 20171103
  Receipt Date: 20180515
  Transmission Date: 20180711
  Serious: Yes (Other)
  Sender: FDA-Public Use
  Company Number: FR-MERCK KGAA-2033163

PATIENT
  Age: 64 Year
  Sex: Female

DRUGS (2)
  1. NOVOTHYROX [Suspect]
     Active Substance: LEVOTHYROXINE SODIUM
     Dates: start: 201705, end: 201709
  2. NOVOTHYROX [Suspect]
     Active Substance: LEVOTHYROXINE SODIUM
     Indication: POST PROCEDURAL HYPOTHYROIDISM
     Dates: start: 201705, end: 201709

REACTIONS (23)
  - Vitamin D decreased [None]
  - Heart rate abnormal [None]
  - Neuropathy peripheral [None]
  - Nausea [Recovering/Resolving]
  - Hypoaesthesia [None]
  - Anxiety [None]
  - Insomnia [Recovering/Resolving]
  - Joint ankylosis [None]
  - Weight increased [None]
  - Bladder disorder [None]
  - Dyspepsia [Recovering/Resolving]
  - Muscle spasms [Recovered/Resolved]
  - Dizziness [Recovering/Resolving]
  - Blood thyroid stimulating hormone increased [None]
  - Musculoskeletal stiffness [Recovering/Resolving]
  - Burning sensation [Not Recovered/Not Resolved]
  - Emotional distress [None]
  - Fatigue [Recovering/Resolving]
  - Arrhythmia [Recovering/Resolving]
  - Headache [Recovering/Resolving]
  - Arthralgia [Not Recovered/Not Resolved]
  - Gastrointestinal disorder [Recovering/Resolving]
  - Mobility decreased [None]

NARRATIVE: CASE EVENT DATE: 2017
